FAERS Safety Report 14578737 (Version 2)
Quarter: 2018Q2

REPORT INFORMATION
  Report Type: Spontaneous
  Country: IT (occurrence: IT)
  Receive Date: 20180227
  Receipt Date: 20180418
  Transmission Date: 20180711
  Serious: Yes (Other)
  Sender: FDA-Public Use
  Company Number: IT-ABBVIE-18P-083-2265146-00

PATIENT
  Age: 46 Year
  Sex: Female

DRUGS (1)
  1. MAVIRET [Suspect]
     Active Substance: GLECAPREVIR\PIBRENTASVIR
     Indication: HEPATITIS C
     Dosage: 300/120MG TABS; 3 TABLETS DAILY
     Route: 048
     Dates: start: 20171214, end: 20180406

REACTIONS (3)
  - Hypertransaminasaemia [Recovered/Resolved]
  - Hyperferritinaemia [Unknown]
  - Hepatotoxicity [Unknown]

NARRATIVE: CASE EVENT DATE: 20180205
